FAERS Safety Report 16470388 (Version 3)
Quarter: 2019Q3

REPORT INFORMATION
  Report Type: Spontaneous
  Country: US (occurrence: US)
  Receive Date: 20190624
  Receipt Date: 20190726
  Transmission Date: 20191004
  Serious: Yes (Other)
  Sender: FDA-Public Use
  Company Number: US-009507513-1906USA007169

PATIENT
  Sex: Female
  Weight: 67.13 kg

DRUGS (8)
  1. ZOCOR [Suspect]
     Active Substance: SIMVASTATIN
     Dosage: UNK
  2. IBRANCE [Suspect]
     Active Substance: PALBOCICLIB
     Indication: BREAST CANCER METASTATIC
     Dosage: DOSE: WAS ON 275
  3. IBRANCE [Suspect]
     Active Substance: PALBOCICLIB
     Dosage: DOSE: 137.5 (CUT IN HALF), TOOK IT EVERY OTHER DAY
  4. GABAPENTIN. [Concomitant]
     Active Substance: GABAPENTIN
     Dosage: 300 MG TWICE A DAY
  5. LEVOTHYROXINE SODIUM. [Concomitant]
     Active Substance: LEVOTHYROXINE SODIUM
     Dosage: 0.1 MG ONCE A DAY
  6. IBRANCE [Suspect]
     Active Substance: PALBOCICLIB
     Dosage: DOSE: TOOK 275 EVERY OTHER DAY
  7. ANASTROZOLE. [Concomitant]
     Active Substance: ANASTROZOLE
     Dosage: 1 MG
  8. OMEPRAZOLE. [Concomitant]
     Active Substance: OMEPRAZOLE
     Dosage: 40 MG ONCE A DAY

REACTIONS (10)
  - Dysstasia [Recovering/Resolving]
  - Muscular weakness [Recovering/Resolving]
  - Muscle disorder [Recovering/Resolving]
  - Hepatic enzyme increased [Unknown]
  - Fatigue [Recovering/Resolving]
  - Paralysis [Recovering/Resolving]
  - Sinusitis [Unknown]
  - Asthenia [Recovering/Resolving]
  - Musculoskeletal stiffness [Recovering/Resolving]
  - Movement disorder [Recovering/Resolving]
